FAERS Safety Report 5369829-X (Version None)
Quarter: 2007Q2

REPORT INFORMATION
  Report Type: 
  Country: None (occurrence: None)
  Receive Date: 20070621
  Receipt Date: 20070606
  Transmission Date: 20071010
  Serious: Yes (Hospitalization, Other)
  Sender: FDA-Public Use
  Company Number: S07-CAN-02602-01

PATIENT
  Age: 62 Year
  Sex: Male

DRUGS (8)
  1. ESCITALOPRAM [Suspect]
     Indication: PANIC DISORDER
     Dosage: 10 MG QD PO
     Route: 048
     Dates: start: 20070502, end: 20070525
  2. ESCITALOPRAM [Suspect]
     Indication: PANIC DISORDER
     Dosage: 5 MG QD PO
     Route: 048
     Dates: start: 20070401, end: 20070502
  3. CIPRALEX (CITALOPRAM HYDROBROMIDE) [Concomitant]
  4. METOPROLOL SUCCINATE [Concomitant]
  5. ALTACE [Concomitant]
  6. CRESTOR [Concomitant]
  7. ASAPHEN (ACETYLSALICYLIC ACID) [Concomitant]
  8. INEXIUM (ESOMEPRAZOLE) [Concomitant]

REACTIONS (2)
  - AUTOIMMUNE THROMBOCYTOPENIA [None]
  - IDIOPATHIC THROMBOCYTOPENIC PURPURA [None]
